FAERS Safety Report 5542487-7 (Version None)
Quarter: 2007Q4

REPORT INFORMATION
  Report Type: 
  Country: None (occurrence: None)
  Receive Date: 20071129
  Receipt Date: 20070515
  Transmission Date: 20080405
  Serious: Yes (Hospitalization, Other)
  Sender: FDA-Public Use
  Company Number: US200703005773

PATIENT
  Age: 30 Year
  Sex: Male

DRUGS (4)
  1. ZYPREXA [Suspect]
     Indication: SCHIZOPHRENIA
     Dosage: 15 MG, DAILY (1/D), ORAL : 345, ORAL : 15 MG, DAILY (1/D), ORAL
     Route: 048
     Dates: start: 20030301, end: 20070301
  2. ZYPREXA [Suspect]
     Indication: SCHIZOPHRENIA
     Dosage: 15 MG, DAILY (1/D), ORAL : 345, ORAL : 15 MG, DAILY (1/D), ORAL
     Route: 048
     Dates: start: 20070301
  3. DEPAKOTE [Concomitant]
  4. PAXIL [Concomitant]

REACTIONS (8)
  - AGGRESSION [None]
  - AGITATION [None]
  - DEPRESSED LEVEL OF CONSCIOUSNESS [None]
  - DRUG SCREEN POSITIVE [None]
  - HEADACHE [None]
  - INTENTIONAL OVERDOSE [None]
  - NAUSEA [None]
  - PSYCHOTIC DISORDER [None]
